FAERS Safety Report 9031769 (Version 3)
Quarter: 2013Q2

REPORT INFORMATION
  Report Type: Spontaneous
  Country: JP (occurrence: JP)
  Receive Date: 20130124
  Receipt Date: 20130405
  Transmission Date: 20140414
  Serious: Yes (Hospitalization)
  Sender: FDA-Public Use
  Company Number: JP-PFIZER INC-2013028072

PATIENT
  Age: 49 Year
  Sex: Male

DRUGS (2)
  1. AMIODARONE HCL [Suspect]
     Indication: ARRHYTHMIA
     Dosage: UNK
     Route: 048
     Dates: start: 2010
  2. INSULIN [Concomitant]
     Indication: DIABETES MELLITUS
     Dosage: 24 UNITS PER DAY

REACTIONS (3)
  - Hyperthyroidism [Unknown]
  - Diabetes mellitus inadequate control [Unknown]
  - Insulin resistance [Unknown]
